FAERS Safety Report 25061280 (Version 1)
Quarter: 2025Q1

REPORT INFORMATION
  Report Type: Report from Study
  Country: US (occurrence: US)
  Receive Date: 20250311
  Receipt Date: 20250311
  Transmission Date: 20250409
  Serious: Yes (Other)
  Sender: ABBVIE
  Company Number: US-ABBVIE-6164573

PATIENT
  Age: 69 Year
  Sex: Female

DRUGS (1)
  1. HUMIRA [Suspect]
     Active Substance: ADALIMUMAB
     Indication: Rheumatoid arthritis
     Route: 058
     Dates: start: 202409

REACTIONS (3)
  - Foot deformity [Recovering/Resolving]
  - Incision site haemorrhage [Not Recovered/Not Resolved]
  - Incision site swelling [Not Recovered/Not Resolved]

NARRATIVE: CASE EVENT DATE: 20250214
